FAERS Safety Report 12616291 (Version 2)
Quarter: 2016Q3

REPORT INFORMATION
  Report Type: Report from Study
  Country: RU (occurrence: RU)
  Receive Date: 20160802
  Receipt Date: 20160811
  Transmission Date: 20161109
  Serious: Yes (Other)
  Sender: FDA-Public Use
  Company Number: PHHY2012RU143408

PATIENT
  Age: 29 Year
  Sex: Female
  Weight: 60 kg

DRUGS (5)
  1. FOLIC ACID. [Concomitant]
     Active Substance: FOLIC ACID
     Indication: PRODUCT USED FOR UNKNOWN INDICATION
     Dosage: 3 MG, UNK
     Route: 048
     Dates: start: 20110715, end: 20110828
  2. VITRUM                             /00944201/ [Concomitant]
     Indication: PRODUCT USED FOR UNKNOWN INDICATION
     Dosage: 3 DF, UNK (3 TABS)
     Route: 048
     Dates: start: 20110830, end: 20120419
  3. GLIVEC [Suspect]
     Active Substance: IMATINIB MESYLATE
     Indication: PRODUCT USED FOR UNKNOWN INDICATION
     Dosage: FETAL DRUG EXPOSURE VIA FATHER
     Route: 065
  4. CURANTYL [Concomitant]
     Active Substance: DIPYRIDAMOLE
     Indication: PLACENTAL INSUFFICIENCY
     Dosage: 75 MG, UNK
     Route: 048
     Dates: start: 20120110, end: 20120419
  5. ACTOVEGIN [Concomitant]
     Active Substance: UNSPECIFIED INGREDIENT
     Indication: PLACENTAL INSUFFICIENCY
     Dosage: 40 MG, UNK
     Route: 042
     Dates: start: 20120207, end: 20120419

REACTIONS (4)
  - Pyelonephritis [Unknown]
  - Delivery [Unknown]
  - Dystonia [Unknown]
  - Exposure via father [Unknown]

NARRATIVE: CASE EVENT DATE: 20160424
